FAERS Safety Report 7513690-1 (Version None)
Quarter: 2011Q2

REPORT INFORMATION
  Report Type: 
  Country: None (occurrence: None)
  Receive Date: 20110531
  Receipt Date: 20110519
  Transmission Date: 20111010
  Serious: Yes (Hospitalization, Other)
  Sender: FDA-Public Use
  Company Number: US-ASTRAZENECA-2011SE30755

PATIENT
  Age: 40 Year
  Sex: Female

DRUGS (3)
  1. SEROQUEL [Suspect]
     Indication: BIPOLAR DISORDER
     Route: 048
  2. CYMBALTA [Concomitant]
  3. LAMICTAL [Concomitant]

REACTIONS (4)
  - STAB WOUND [None]
  - FAT NECROSIS [None]
  - SURGICAL STAPLING [None]
  - SUTURE REMOVAL [None]
